FAERS Safety Report 17697519 (Version 1)
Quarter: 2020Q2

REPORT INFORMATION
  Report Type: Spontaneous
  Country: US (occurrence: US)
  Receive Date: 20200422
  Receipt Date: 20200422
  Transmission Date: 20200714
  Serious: Yes (Hospitalization)
  Sender: FDA-Public Use
  Company Number: None

PATIENT
  Sex: Female
  Weight: 14.1 kg

DRUGS (6)
  1. CYCLOPHOSPHAMIDE 620MG [Suspect]
     Active Substance: CYCLOPHOSPHAMIDE
     Dates: end: 20200323
  2. VINCRISTINE SULFATE 1.86MG [Suspect]
     Active Substance: VINCRISTINE SULFATE
     Dates: end: 20200413
  3. METHOTREXATE 48MG [Suspect]
     Active Substance: METHOTREXATE
     Dates: end: 20200414
  4. ONCASPAR [Suspect]
     Active Substance: PEGASPARGASE
     Dates: end: 20200323
  5. MERCAPTOPURINE 532MG [Suspect]
     Active Substance: MERCAPTOPURINE
     Dates: end: 20200405
  6. CYTARABINE 372 MG [Suspect]
     Active Substance: CYTARABINE
     Dates: end: 20200402

REACTIONS (3)
  - Vomiting [None]
  - Pancreatitis acute [None]
  - Abdominal pain [None]

NARRATIVE: CASE EVENT DATE: 20200420
